FAERS Safety Report 8057476-0 (Version None)
Quarter: 2012Q1

REPORT INFORMATION
  Report Type: 
  Country: None (occurrence: None)
  Receive Date: 20120119
  Receipt Date: 20120110
  Transmission Date: 20120608
  Serious: Yes (Other)
  Sender: FDA-Public Use
  Company Number: GB-MERCK-1201USA01075

PATIENT
  Age: 34 Year
  Sex: Female

DRUGS (4)
  1. METOCLOPRAMIDE [Suspect]
     Route: 065
  2. DECADRON [Suspect]
     Route: 065
  3. IFOSFAMIDE [Suspect]
     Route: 065
  4. ONDANSETRON [Suspect]
     Route: 065

REACTIONS (1)
  - BRADYCARDIA [None]
